FAERS Safety Report 5481222-8 (Version None)
Quarter: 2007Q4

REPORT INFORMATION
  Report Type: 
  Country: None (occurrence: None)
  Receive Date: 20071010
  Receipt Date: 20071001
  Transmission Date: 20080405
  Serious: Yes (Other)
  Sender: FDA-Public Use
  Company Number: PHBS2007CO07409

PATIENT
  Age: 77 Year
  Sex: Female
  Weight: 62 kg

DRUGS (6)
  1. PERSANTIN [Concomitant]
     Indication: PLATELET AGGREGATION INHIBITION
  2. ZELNORM [Suspect]
     Dosage: 6 MG, UNK
     Route: 048
  3. CAPTOPRIL [Concomitant]
     Indication: HYPERTENSION
     Dosage: 50 MG, Q8H
  4. ASPIRIN [Concomitant]
     Dosage: 100 MG/DAY
  5. GLYBURIDE [Concomitant]
  6. METOPROLOL TARTRATE [Concomitant]
     Dosage: 50 MG/DAY

REACTIONS (8)
  - ABDOMINAL PAIN UPPER [None]
  - ANGINA UNSTABLE [None]
  - ARRHYTHMIA [None]
  - BUNDLE BRANCH BLOCK RIGHT [None]
  - CHEST PAIN [None]
  - DYSPNOEA [None]
  - HEADACHE [None]
  - HYPERTENSIVE CRISIS [None]
